FAERS Safety Report 19987359 (Version 1)
Quarter: 2021Q4

REPORT INFORMATION
  Report Type: Report from Study
  Country: US (occurrence: US)
  Receive Date: 20211022
  Receipt Date: 20211022
  Transmission Date: 20220303
  Serious: Yes (Hospitalization, Other)
  Sender: FDA-Public Use
  Company Number: US-BAYER-2021A231922

PATIENT
  Age: 68 Year
  Sex: Female
  Weight: 108.84 kg

DRUGS (4)
  1. ADEMPAS [Suspect]
     Active Substance: RIOCIGUAT
     Indication: Pulmonary arterial hypertension
     Dosage: UNK
     Dates: start: 20210818
  2. ADEMPAS [Suspect]
     Active Substance: RIOCIGUAT
     Indication: Pulmonary arterial hypertension
     Dosage: 2.5 MG, TID
     Route: 048
     Dates: start: 2021
  3. OPSUMIT [Concomitant]
     Active Substance: MACITENTAN
     Dosage: UNK
  4. UPTRAVI [Concomitant]
     Active Substance: SELEXIPAG
     Dosage: UNK

REACTIONS (9)
  - Fluid retention [None]
  - Oedema [None]
  - Diverticulitis [Not Recovered/Not Resolved]
  - Headache [None]
  - Neck pain [Not Recovered/Not Resolved]
  - Hepatic steatosis [None]
  - Epistaxis [None]
  - Pruritus [None]
  - Gout [None]

NARRATIVE: CASE EVENT DATE: 20210101
